FAERS Safety Report 7393893-X (Version None)
Quarter: 2011Q2

REPORT INFORMATION
  Report Type: 
  Country: None (occurrence: None)
  Receive Date: 20110405
  Receipt Date: 20110322
  Transmission Date: 20111010
  Serious: Yes (Hospitalization)
  Sender: FDA-Public Use
  Company Number: US-ACTELION-A-NJ2011-46140

PATIENT

DRUGS (5)
  1. REVATIO [Concomitant]
  2. CALCIUM CHANNEL BLOCKERS [Concomitant]
  3. COUMADIN [Concomitant]
  4. TRACLEER [Suspect]
     Indication: PULMONARY ARTERIAL HYPERTENSION
     Dosage: UNK
     Route: 048
     Dates: start: 20080925
  5. VENTAVIS [Suspect]
     Indication: PULMONARY ARTERIAL HYPERTENSION
     Dosage: UNK
     Route: 055
     Dates: start: 20050914

REACTIONS (5)
  - PNEUMONIA [None]
  - UPPER RESPIRATORY TRACT INFECTION [None]
  - DYSPNOEA [None]
  - FLUID RETENTION [None]
  - PALPITATIONS [None]
